FAERS Safety Report 11515408 (Version 2)
Quarter: 2015Q3

REPORT INFORMATION
  Report Type: Spontaneous
  Country: US (occurrence: US)
  Receive Date: 20150916
  Receipt Date: 20150921
  Transmission Date: 20151125
  Serious: No
  Sender: FDA-Public Use
  Company Number: US-TEVA-593686USA

PATIENT
  Sex: Female
  Weight: 89.89 kg

DRUGS (1)
  1. PROAIR HFA [Suspect]
     Active Substance: ALBUTEROL SULFATE
     Route: 055
     Dates: start: 2010

REACTIONS (8)
  - Dysphonia [Unknown]
  - Bronchitis [Unknown]
  - Breath alcohol test positive [Unknown]
  - Intentional product misuse [Unknown]
  - Sensation of foreign body [Unknown]
  - Drug ineffective [Unknown]
  - Expired product administered [Unknown]
  - Oropharyngeal pain [Unknown]

NARRATIVE: CASE EVENT DATE: 2010
